FAERS Safety Report 18657306 (Version 1)
Quarter: 2020Q4

REPORT INFORMATION
  Report Type: Spontaneous
  Country: US (occurrence: US)
  Receive Date: 20201223
  Receipt Date: 20201223
  Transmission Date: 20210114
  Serious: Yes (Other)
  Sender: FDA-Public Use
  Company Number: US-ASTRAZENECA-2020SF69688

PATIENT
  Age: 63 Year
  Sex: Male
  Weight: 107.5 kg

DRUGS (7)
  1. AZELASTINE HCL [Concomitant]
     Active Substance: AZELASTINE HYDROCHLORIDE
     Indication: RHINITIS ALLERGIC
     Route: 045
     Dates: start: 20200603
  2. XIGDUO XR [Suspect]
     Active Substance: DAPAGLIFLOZIN PROPANEDIOL\METFORMIN HYDROCHLORIDE
     Indication: DIABETES MELLITUS
     Dosage: 5/1000 MG DAILY
     Route: 048
     Dates: start: 20200701
  3. ALBUTEROL HFA [Concomitant]
     Active Substance: ALBUTEROL SULFATE
     Dosage: 108,EVERY 4 - 6 HOURS
     Dates: start: 20190226
  4. FLONASE [Concomitant]
     Active Substance: FLUTICASONE PROPIONATE
     Indication: HYPERSENSITIVITY
     Route: 045
     Dates: start: 20190226
  5. SYMBICORT [Suspect]
     Active Substance: BUDESONIDE\FORMOTEROL FUMARATE DIHYDRATE
     Dosage: 160/4.5MCG 1 PUFF TWO TIMES A DAY
     Route: 055
     Dates: start: 20190704
  6. SIMVASTATIN. [Concomitant]
     Active Substance: SIMVASTATIN
     Dates: start: 20190829
  7. LANTUS SOLASTAR [Concomitant]
     Dates: start: 20200609

REACTIONS (5)
  - Body mass index increased [Unknown]
  - Haematuria [Recovered/Resolved]
  - Penile discharge [Unknown]
  - Glycosylated haemoglobin increased [Unknown]
  - Penile haemorrhage [Recovered/Resolved]

NARRATIVE: CASE EVENT DATE: 20200922
